FAERS Safety Report 9715165 (Version 2)
Quarter: 2014Q1

REPORT INFORMATION
  Report Type: Spontaneous
  Country: NZ (occurrence: NZ)
  Receive Date: 20131126
  Receipt Date: 20140106
  Transmission Date: 20141002
  Serious: Yes (Other)
  Sender: FDA-Public Use
  Company Number: NZ-BAXTER-2013BAX046765

PATIENT
  Age: 40 Year
  Sex: Female

DRUGS (2)
  1. ARTISS [Suspect]
     Indication: PTERYGIUM OPERATION
     Route: 065
     Dates: start: 20131120, end: 20131120
  2. ARTISS [Suspect]
     Indication: OFF LABEL USE

REACTIONS (1)
  - Graft complication [Recovered/Resolved]
